FAERS Safety Report 4309633-4 (Version None)
Quarter: 2004Q1

REPORT INFORMATION
  Report Type: 
  Country: None (occurrence: None)
  Receive Date: 20040301
  Receipt Date: 20040217
  Transmission Date: 20041129
  Serious: Yes (Hospitalization)
  Sender: FDA-Public Use
  Company Number: 2004IM000288

PATIENT
  Age: 44 Year
  Sex: Female

DRUGS (5)
  1. ADVAFERON (A643_INTERFERON ALFACON-1) [Suspect]
     Indication: HEPATITIS C
     Dosage: 18 MU; QD; SUBCUTANEOUS
     Route: 058
     Dates: start: 20031223, end: 20040124
  2. LEVOFLOXACIN [Concomitant]
  3. DICLOFENAC SODIUM [Concomitant]
  4. ETIZOLAM [Concomitant]
  5. BROTIZOLAM [Concomitant]

REACTIONS (1)
  - CONVULSION [None]
